FAERS Safety Report 10747742 (Version 5)
Quarter: 2022Q2

REPORT INFORMATION
  Report Type: Spontaneous
  Country: US (occurrence: US)
  Receive Date: 20150129
  Receipt Date: 20220622
  Transmission Date: 20220721
  Serious: Yes (Hospitalization, Other)
  Sender: FDA-Public Use
  Company Number: US-PFIZER INC-2015026322

PATIENT
  Age: 51 Year
  Sex: Male
  Weight: 65.76 kg

DRUGS (26)
  1. RAPAMUNE [Suspect]
     Active Substance: SIROLIMUS
     Indication: Prophylaxis against transplant rejection
     Dosage: 1 MG, 1X/DAY
     Dates: start: 1999
  2. RAPAMUNE [Suspect]
     Active Substance: SIROLIMUS
     Dosage: 1 MG, 1X/DAY
     Route: 048
  3. LISINOPRIL [Concomitant]
     Active Substance: LISINOPRIL
     Dosage: 5 MG, UNK
  4. METOPROLOL [Concomitant]
     Active Substance: METOPROLOL
     Indication: Cardiac disorder
     Dosage: 25 MG, UNK
  5. METOPROLOL [Concomitant]
     Active Substance: METOPROLOL
     Dosage: 50 MG, 2X/DAY
     Route: 048
  6. ZOLPIDEM [Concomitant]
     Active Substance: ZOLPIDEM TARTRATE
     Indication: Sleep disorder
     Dosage: 10 MG, 1X/DAY, (AT NIGHT)
  7. PRAVASTATIN [Concomitant]
     Active Substance: PRAVASTATIN
     Dosage: 40 MG, UNK
  8. PRAVASTATIN [Concomitant]
     Active Substance: PRAVASTATIN
     Dosage: 80 MG, 1X/DAY
  9. CHOLESTYRAMINE [Concomitant]
     Active Substance: CHOLESTYRAMINE
     Dosage: 4 MG, UNK
  10. DIAZEPAM [Concomitant]
     Active Substance: DIAZEPAM
     Indication: Anxiety
     Dosage: 10 MG, UNK
  11. DIAZEPAM [Concomitant]
     Active Substance: DIAZEPAM
     Dosage: 5 MG, AS NEEDED, (DOESN^T TAKE IT EVERYDAY/1/2 AT NIGHT)
  12. MECLIZINE [Concomitant]
     Active Substance: MECLIZINE HYDROCHLORIDE
     Dosage: 25 MG, UNK
  13. TAMSULOSIN [Concomitant]
     Active Substance: TAMSULOSIN
     Dosage: 0.4 MG, UNK
  14. CYCLOBENZAPRINE [Concomitant]
     Active Substance: CYCLOBENZAPRINE
     Indication: Cardiac disorder
     Dosage: 10 MG, 2X/DAY
  15. AMITRIPTYLINE [Concomitant]
     Active Substance: AMITRIPTYLINE
     Dosage: 50 MG, UNK
  16. DONEPEZIL [Concomitant]
     Active Substance: DONEPEZIL
     Dosage: 10 MG, UNK
  17. AMLODIPINE [Concomitant]
     Active Substance: AMLODIPINE BESYLATE
     Indication: Blood pressure increased
     Dosage: 5 MG, UNK, (ONCE)
  18. FLOMAX [Concomitant]
     Active Substance: TAMSULOSIN HYDROCHLORIDE
     Indication: Prostatomegaly
     Dosage: 0.4 MG, 1X/DAY
  19. OXYCODONE [Concomitant]
     Active Substance: OXYCODONE
     Dosage: 10 MG, UNK, (2-2.5 TABLETS A DAY), (HE CUTS THEM IN HALF)
  20. NITROGLYCERIN [Concomitant]
     Active Substance: NITROGLYCERIN
     Dosage: UNK, AS NEEDED
  21. IMODIUM AD [Concomitant]
     Active Substance: LOPERAMIDE HYDROCHLORIDE
     Indication: Diarrhoea
     Dosage: 2 MG, 4X/DAY
  22. PANCRELIPASE AMYLASE\PANCRELIPASE LIPASE\PANCRELIPASE PROTEASE [Concomitant]
     Active Substance: PANCRELIPASE AMYLASE\PANCRELIPASE LIPASE\PANCRELIPASE PROTEASE
     Indication: Diarrhoea
     Dosage: 24000 IU, 2X/DAY, (CPDR)
  23. IRBESARTAN [Concomitant]
     Active Substance: IRBESARTAN
     Indication: Cardiac disorder
     Dosage: 150 MG, 1X/DAY
     Route: 048
  24. GABAPENTIN [Concomitant]
     Active Substance: GABAPENTIN
     Indication: Pain in extremity
     Dosage: 300 MG, 2X/DAY
     Route: 048
  25. FUROSEMIDE [Concomitant]
     Active Substance: FUROSEMIDE
     Indication: Fluid retention
     Dosage: 20 MG, 1X/DAY
     Route: 048
  26. DILTIAZEM [Concomitant]
     Active Substance: DILTIAZEM
     Indication: Cardiac disorder
     Dosage: 180 MG, 1X/DAY
     Route: 048

REACTIONS (10)
  - Pneumonia [Unknown]
  - Thrombotic microangiopathy [Unknown]
  - Appendicitis [Unknown]
  - Neck surgery [Recovered/Resolved]
  - Spinal operation [Recovered/Resolved]
  - Off label use [Unknown]
  - Exostosis [Not Recovered/Not Resolved]
  - Limb discomfort [Not Recovered/Not Resolved]
  - Headache [Unknown]
  - COVID-19 [Unknown]

NARRATIVE: CASE EVENT DATE: 19990101
